FAERS Safety Report 10709614 (Version 1)
Quarter: 2015Q1

REPORT INFORMATION
  Report Type: Spontaneous
  Country: US (occurrence: None)
  Receive Date: 20150113
  Receipt Date: 20150113
  Transmission Date: 20150721
  Serious: Yes (Other)
  Sender: FDA-Public Use
  Company Number: None

PATIENT
  Age: 62 Year
  Sex: Female
  Weight: 58.97 kg

DRUGS (1)
  1. MAXITROL [Suspect]
     Active Substance: DEXAMETHASONE\NEOMYCIN SULFATE\POLYMYXIN B SULFATE
     Indication: LACRIMATION INCREASED
     Dosage: 1X NIGHTLY IN BOTH EYES AT BED TIME
     Dates: start: 20141222, end: 20150102

REACTIONS (4)
  - Foreign body sensation in eyes [None]
  - Pain [None]
  - Discomfort [None]
  - Visual impairment [None]

NARRATIVE: CASE EVENT DATE: 20150112
